FAERS Safety Report 20947420 (Version 1)
Quarter: 2022Q2

REPORT INFORMATION
  Report Type: Spontaneous
  Country: FR (occurrence: FR)
  Receive Date: 20220610
  Receipt Date: 20220610
  Transmission Date: 20220720
  Serious: Yes (Hospitalization)
  Sender: FDA-Public Use
  Company Number: None

PATIENT

DRUGS (8)
  1. PROPRANOLOL HYDROCHLORIDE [Suspect]
     Active Substance: PROPRANOLOL HYDROCHLORIDE
     Indication: Product used for unknown indication
     Dosage: 160 MG, QD (1/DAY)
     Route: 048
  2. LEVOTHYROXINE SODIUM [Suspect]
     Active Substance: LEVOTHYROXINE SODIUM
     Indication: Hypothyroidism
     Dosage: 3375 UG, MONTHLY
     Route: 048
  3. ACETAMINOPHEN [Suspect]
     Active Substance: ACETAMINOPHEN
     Indication: Pain
     Dosage: 3 G, UNK
     Route: 048
  4. POLYETHYLENE GLYCOLS [Suspect]
     Active Substance: POLYETHYLENE GLYCOLS
     Indication: Constipation
     Dosage: 1 DF, QD (1/DAY)
     Route: 048
  5. PREDNISONE [Suspect]
     Active Substance: PREDNISONE
     Indication: Dermatomyositis
     Dosage: 20 MG, QD (1/DAY)
     Route: 048
  6. CALCIUM CARBONATE\CHOLECALCIFEROL\PHYTONADIONE [Suspect]
     Active Substance: CALCIUM CARBONATE\CHOLECALCIFEROL\PHYTONADIONE
     Indication: Mineral supplementation
     Dosage: UNK
     Route: 048
  7. XELJANZ [Suspect]
     Active Substance: TOFACITINIB CITRATE
     Indication: Dermatomyositis
     Route: 048
  8. CROMOLYN SODIUM [Suspect]
     Active Substance: CROMOLYN SODIUM
     Indication: Sjogren^s syndrome
     Dosage: 3 [DRP], QD (1/DAY)
     Route: 047

REACTIONS (3)
  - Pulmonary embolism [Recovered/Resolved]
  - Product use issue [Unknown]
  - Off label use [Unknown]

NARRATIVE: CASE EVENT DATE: 20220315
